FAERS Safety Report 9406317 (Version 1)
Quarter: 2013Q3

REPORT INFORMATION
  Report Type: Spontaneous
  Country: US (occurrence: US)
  Receive Date: 20130717
  Receipt Date: 20130717
  Transmission Date: 20140515
  Serious: No
  Sender: FDA-Public Use
  Company Number: US-009507513-1307USA006243

PATIENT
  Sex: Male

DRUGS (1)
  1. PEGINTRON [Suspect]
     Dosage: 150 MCG/0.5ML, INJECT ONE REDIPEN SUBCUTANEOUSLY EVERY WEEK
     Route: 058

REACTIONS (3)
  - Irritability [Unknown]
  - Headache [Unknown]
  - Weight decreased [Unknown]
